FAERS Safety Report 25059418 (Version 1)
Quarter: 2025Q1

REPORT INFORMATION
  Report Type: Spontaneous
  Country: AU (occurrence: AU)
  Receive Date: 20250310
  Receipt Date: 20250310
  Transmission Date: 20250409
  Serious: Yes (Death, Other)
  Sender: DAIICHI
  Company Number: AU-ASTRAZENECA-202503OCE000109AU

PATIENT
  Age: 63 Year
  Sex: Female

DRUGS (1)
  1. TRASTUZUMAB DERUXTECAN [Suspect]
     Active Substance: TRASTUZUMAB DERUXTECAN
     Indication: Breast cancer
     Route: 065

REACTIONS (4)
  - Portal hypertension [Fatal]
  - Disease progression [Unknown]
  - Hepatic cirrhosis [Unknown]
  - Intestinal atony [Unknown]

NARRATIVE: CASE EVENT DATE: 20241010
